FAERS Safety Report 9645274 (Version 3)
Quarter: 2013Q4

REPORT INFORMATION
  Report Type: Spontaneous
  Country: US (occurrence: US)
  Receive Date: 20131025
  Receipt Date: 20131114
  Transmission Date: 20140711
  Serious: Yes (Hospitalization, Other)
  Sender: FDA-Public Use
  Company Number: PHHY2013US114585

PATIENT
  Age: 57 Year
  Sex: Female

DRUGS (23)
  1. LIORESAL INTRATECAL [Suspect]
     Indication: MUSCLE SPASTICITY
     Dosage: 1698.3 UG, DAILY
     Route: 037
  2. LIORESAL INTRATECAL [Suspect]
     Dosage: 1700 UG, DAILY
     Route: 037
  3. LIORESAL INTRATECAL [Suspect]
     Dosage: 11.8 PER DAY
     Route: 037
  4. BACLOFEN [Suspect]
     Dosage: 1 DF, TID
     Route: 048
     Dates: start: 20130515
  5. ELIDEL [Suspect]
     Dosage: 1 DF, BID
     Route: 061
  6. VOLTAREN [Suspect]
     Dosage: 1 DF, QID
     Route: 061
  7. TIZANIDINE [Suspect]
     Dosage: 1-2 DF, THREE TIMES PER DAY
     Route: 048
  8. TRAMADOL HYDROCHLORIDE [Suspect]
     Indication: PAIN
     Dosage: 1 DF, QID
     Route: 048
     Dates: start: 20130219
  9. CETIRIZINE HYDROCHLORIDE+PSEUDOEPHEDRINE HYDROCHLORIDE ER [Suspect]
     Dosage: 1 DF (CET: 5MG, PSEUD: 120 MG), PRN
     Route: 048
  10. RANITIDINE HYDROCHLORIDE [Suspect]
     Dosage: 1 DF, QD
     Route: 048
  11. PROTONIX [Suspect]
     Dosage: 1 DF, BID
     Route: 048
  12. DULCOLAX [Suspect]
     Dosage: 2 DF, EVERY NIGHT AT BEDTIME
     Route: 048
  13. CELEXA [Suspect]
     Dosage: 1 DF, QD
  14. FLONASE [Suspect]
     Dosage: 1 DF (SPRAY), QD
     Route: 045
  15. VITAMIN D3 [Suspect]
     Dosage: 1 DF, UNK
     Route: 048
  16. HYDROCORTISONE [Suspect]
     Dosage: UNK UKN, UNK
  17. MUPIROCIN [Suspect]
     Dosage: 1 DF, TID (APPLIED THREE TIMES PER DAY)
     Route: 061
  18. TYLENOL PM [Suspect]
     Dosage: 1000 MG, (EVERY NIGHT AT BEDTIME)
     Route: 048
  19. CLOBETASOL PROPIONATE [Suspect]
     Dosage: 1 DF, BID
     Route: 061
  20. SILVER SULFADIAZINE [Suspect]
     Dosage: 1 DF, BID
     Route: 061
  21. ASTELIN [Suspect]
     Dosage: 2 DF, BID
     Route: 045
  22. DAILY MULTIVITAMIN [Suspect]
     Dosage: 1 DF, QD
     Route: 048
  23. VITAMINS NOS [Suspect]
     Dosage: 1 DF DAILY
     Route: 048

REACTIONS (3)
  - Pain [Unknown]
  - Muscle spasms [Unknown]
  - Muscle spasticity [Unknown]
